FAERS Safety Report 4310999-X (Version None)
Quarter: 2004Q1

REPORT INFORMATION
  Report Type: 
  Country: None (occurrence: None)
  Receive Date: 20040302
  Receipt Date: 20040302
  Transmission Date: 20041129
  Serious: Yes (Hospitalization, Other)
  Sender: FDA-Public Use
  Company Number: None

PATIENT
  Age: 45 Year
  Sex: Female
  Weight: 49.8957 kg

DRUGS (2)
  1. DILANTIN 100 MGS PARKE-DAVIS [Suspect]
     Indication: EPILEPSY
     Dosage: 330 MGS 200 AM/13 ORAL
     Route: 048
     Dates: start: 20030120, end: 20030210
  2. GABITRIL [Suspect]
     Indication: EPILEPSY
     Dosage: 32 MGS 16 AM/16 P ORAL
     Route: 048
     Dates: start: 20020807, end: 20030210

REACTIONS (5)
  - ANXIETY [None]
  - DRUG LEVEL INCREASED [None]
  - FEELING ABNORMAL [None]
  - HALLUCINATION [None]
  - MITRAL VALVE PROLAPSE [None]
